FAERS Safety Report 5276169-6 (Version None)
Quarter: 2007Q1

REPORT INFORMATION
  Report Type: 
  Country: None (occurrence: None)
  Receive Date: 20070326
  Receipt Date: 20070315
  Transmission Date: 20070707
  Serious: Yes (Other)
  Sender: FDA-Public Use
  Company Number: DE-SHR-DE-2007-009587

PATIENT
  Age: 75 Year
  Sex: Female
  Weight: 90 kg

DRUGS (5)
  1. FLUDARA 50 MG (SH L 573 A) [Suspect]
     Dosage: 30 MG/M2, 1X/DAY
     Dates: start: 20060904, end: 20060907
  2. FLUDARA 50 MG (SH L 573 A) [Suspect]
     Dosage: 30 MG/M2, 1X/DAY
     Dates: start: 20061004, end: 20061007
  3. FLUDARA 50 MG (SH L 573 A) [Suspect]
     Dosage: 30 MG/M2, 1X/DAY
     Dates: start: 20061106, end: 20061109
  4. FLUDARA 50 MG (SH L 573 A) [Suspect]
     Dosage: 30 MG/M2, 1X/DAY
     Dates: start: 20061204, end: 20061207
  5. FLUDARA 50 MG (SH L 573 A) [Suspect]
     Dosage: 30 MG/M2, 1X/DAY
     Dates: start: 20070108, end: 20070111

REACTIONS (1)
  - IDIOPATHIC THROMBOCYTOPENIC PURPURA [None]
